FAERS Safety Report 7378147-X (Version None)
Quarter: 2011Q1

REPORT INFORMATION
  Report Type: 
  Country: None (occurrence: None)
  Receive Date: 20110328
  Receipt Date: 20110324
  Transmission Date: 20110831
  Serious: Yes (Other)
  Sender: FDA-Public Use
  Company Number: US-CEPHALON-2011001379

PATIENT

DRUGS (2)
  1. RITUXAN [Concomitant]
  2. TREANDA [Suspect]
     Indication: MANTLE CELL LYMPHOMA
     Route: 042

REACTIONS (1)
  - ENCEPHALOPATHY [None]
